FAERS Safety Report 4823497-1 (Version None)
Quarter: 2005Q4

REPORT INFORMATION
  Report Type: 
  Country: None (occurrence: None)
  Receive Date: 20051107
  Receipt Date: 20051027
  Transmission Date: 20060501
  Serious: Yes (Other)
  Sender: FDA-Public Use
  Company Number: 2005PV003544

PATIENT
  Age: 57 Year
  Sex: Female
  Weight: 94.3482 kg

DRUGS (4)
  1. BYETTA [Suspect]
     Indication: DIABETES MELLITUS NON-INSULIN-DEPENDENT
     Dosage: SEE IMAGE
     Route: 058
     Dates: start: 20050915, end: 20050101
  2. BYETTA [Suspect]
     Indication: DIABETES MELLITUS NON-INSULIN-DEPENDENT
     Dosage: SEE IMAGE
     Route: 058
     Dates: start: 20051014
  3. GLUCOPHAGE [Concomitant]
  4. LANTUS [Concomitant]

REACTIONS (4)
  - BLOOD GLUCOSE DECREASED [None]
  - BREAST CANCER [None]
  - DECREASED APPETITE [None]
  - HYPERHIDROSIS [None]
